FAERS Safety Report 7152855-8 (Version None)
Quarter: 2010Q4

REPORT INFORMATION
  Report Type: 
  Country: None (occurrence: None)
  Receive Date: 20101213
  Receipt Date: 20101207
  Transmission Date: 20110411
  Serious: Yes (Life-Threatening)
  Sender: FDA-Public Use
  Company Number: PHHY2010AU33046

PATIENT
  Sex: Female
  Weight: 121 kg

DRUGS (4)
  1. ACLASTA [Suspect]
     Indication: OSTEOPOROSIS
     Dosage: 5 MG/100 ML
     Dates: start: 20090617
  2. PRIMIDONE [Concomitant]
     Indication: HYPERTENSION
     Dosage: 0.3 MG
     Route: 048
  3. EFFEXOR [Concomitant]
     Indication: DEPRESSION
     Dosage: 150 MG
     Route: 048
  4. OLMETEC [Concomitant]
     Dosage: 20 MG
     Route: 048

REACTIONS (5)
  - APPARENT DEATH [None]
  - FEELING ABNORMAL [None]
  - INFLUENZA LIKE ILLNESS [None]
  - PAIN [None]
  - PYREXIA [None]
